FAERS Safety Report 7044852-8 (Version None)
Quarter: 2010Q4

REPORT INFORMATION
  Report Type: 
  Country: None (occurrence: None)
  Receive Date: 20101014
  Receipt Date: 20101002
  Transmission Date: 20110411
  Serious: Yes (Hospitalization, Other)
  Sender: FDA-Public Use
  Company Number: PHHY2010CA52290

PATIENT
  Sex: Female

DRUGS (8)
  1. CLOZARIL [Suspect]
     Indication: SCHIZOPHRENIA
     Dosage: 150 HS
     Route: 048
     Dates: start: 20100702, end: 20100805
  2. INSULIN [Concomitant]
     Dosage: 26 UNITS AM AND 30 UNITS PM
  3. METFORMIN [Concomitant]
     Dosage: 850 TID
     Route: 048
  4. LUVOX [Concomitant]
     Dosage: 50 HS
  5. METOPROLOL [Concomitant]
  6. PANTOLOC [Concomitant]
  7. ASPIRIN [Concomitant]
  8. AVAPRO [Concomitant]

REACTIONS (1)
  - ACUTE MYOCARDIAL INFARCTION [None]
